FAERS Safety Report 17571314 (Version 1)
Quarter: 2020Q1

REPORT INFORMATION
  Report Type: Spontaneous
  Country: US (occurrence: US)
  Receive Date: 20200320
  Receipt Date: 20200320
  Transmission Date: 20200409
  Serious: Yes (Other)
  Sender: FDA-Public Use
  Company Number: None

PATIENT
  Age: 74 Year
  Sex: Female

DRUGS (2)
  1. METOPROLOL SUCC ER TAB 50MG [Concomitant]
     Active Substance: METOPROLOL SUCCINATE
     Dates: end: 20181215
  2. METOPROLOL SUCC ER [Suspect]
     Active Substance: METOPROLOL SUCCINATE
     Route: 048

REACTIONS (3)
  - Arrhythmia [None]
  - Product substitution issue [None]
  - Loss of consciousness [None]
